FAERS Safety Report 4455006-3 (Version None)
Quarter: 2004Q3

REPORT INFORMATION
  Report Type: 
  Country: None (occurrence: None)
  Receive Date: 20040824
  Receipt Date: 20040616
  Transmission Date: 20050211
  Serious: No
  Sender: FDA-Public Use
  Company Number: SU-2004-002462

PATIENT
  Age: 68 Year
  Sex: Female
  Weight: 87.0906 kg

DRUGS (4)
  1. BENICAR [Suspect]
     Indication: HYPERTENSION
     Dosage: 40 MG QD PO
     Route: 048
     Dates: start: 20020901, end: 20040101
  2. BENICAR [Suspect]
     Indication: HYPERTENSION
     Dosage: 20 MG QD PO
     Route: 048
     Dates: start: 20040101
  3. LESCOL [Concomitant]
  4. HYDROXYZINE [Concomitant]

REACTIONS (1)
  - URTICARIA [None]
